FAERS Safety Report 25172577 (Version 1)
Quarter: 2025Q2

REPORT INFORMATION
  Report Type: Spontaneous
  Country: GB (occurrence: GB)
  Receive Date: 20250408
  Receipt Date: 20250408
  Transmission Date: 20250717
  Serious: Yes (Other)
  Sender: GENMAB
  Company Number: GB-ABBVIE-6214021

PATIENT
  Sex: Female

DRUGS (2)
  1. EPCORITAMAB [Suspect]
     Active Substance: EPCORITAMAB
     Indication: Diffuse large B-cell lymphoma
     Route: 058
  2. EPCORITAMAB [Suspect]
     Active Substance: EPCORITAMAB
     Route: 058

REACTIONS (2)
  - Seizure [Unknown]
  - Immune effector cell-associated neurotoxicity syndrome [Unknown]
